FAERS Safety Report 8306288-9 (Version None)
Quarter: 2012Q2

REPORT INFORMATION
  Report Type: 
  Country: None (occurrence: None)
  Receive Date: 20120423
  Receipt Date: 20120412
  Transmission Date: 20120825
  Serious: Yes (Death, Hospitalization)
  Sender: FDA-Public Use
  Company Number: PT-BAXTER-2010BH002843

PATIENT
  Sex: Male

DRUGS (4)
  1. PHYSIONEAL 40 GLUCOSE 2,27% P/V / 22,7 MG/ML [Suspect]
     Route: 033
     Dates: start: 20050707
  2. EXTRANEAL [Suspect]
     Route: 033
     Dates: start: 20050707
  3. NUTRINEAL [Suspect]
     Route: 033
     Dates: start: 20050707
  4. PHYSIONEAL 40 GLUCOSE 1,36% P/V / 13,6 MG/ML [Suspect]
     Route: 033
     Dates: start: 20050707

REACTIONS (1)
  - INFECTIOUS PERITONITIS [None]
